FAERS Safety Report 4280133-3 (Version None)
Quarter: 2004Q1

REPORT INFORMATION
  Report Type: 
  Country: None (occurrence: None)
  Receive Date: 20040126
  Receipt Date: 20030930
  Transmission Date: 20041129
  Serious: Yes (Hospitalization, Other)
  Sender: FDA-Public Use
  Company Number: M2004.6857

PATIENT
  Age: 9 Year
  Sex: Male

DRUGS (1)
  1. AMOXICILLIN [Suspect]
     Indication: TONSILLITIS
     Dosage: 50MG/KG DAILY, ORAL
     Route: 048

REACTIONS (7)
  - ABDOMINAL PAIN [None]
  - BIOPSY KIDNEY ABNORMAL [None]
  - BLISTER [None]
  - HALLUCINATION [None]
  - NEPHRITIS [None]
  - RENAL FAILURE ACUTE [None]
  - ULTRASOUND SCAN ABNORMAL [None]
